FAERS Safety Report 19354937 (Version 1)
Quarter: 2021Q2

REPORT INFORMATION
  Report Type: Spontaneous
  Country: US (occurrence: US)
  Receive Date: 20210602
  Receipt Date: 20210602
  Transmission Date: 20210717
  Serious: No
  Sender: FDA-Public Use
  Company Number: US-ENCUBE-000072

PATIENT
  Age: 84 Year
  Sex: Male

DRUGS (1)
  1. DICLOFENAC SODIUM TOPICAL GEL 1% [Suspect]
     Active Substance: DICLOFENAC SODIUM
     Indication: BACK PAIN
     Dosage: TOPICAL GEL 1% TWICE DAILY
     Route: 061

REACTIONS (4)
  - Off label use [Unknown]
  - Condition aggravated [Not Recovered/Not Resolved]
  - Decubitus ulcer [Not Recovered/Not Resolved]
  - Erythema [Not Recovered/Not Resolved]
